FAERS Safety Report 4755509-8 (Version None)
Quarter: 2005Q3

REPORT INFORMATION
  Report Type: 
  Country: None (occurrence: None)
  Receive Date: 20050830
  Receipt Date: 20050325
  Transmission Date: 20060218
  Serious: No
  Sender: FDA-Public Use
  Company Number: US-BRISTOL-MYERS SQUIBB COMPANY-12911640

PATIENT
  Age: 52 Year
  Sex: Female

DRUGS (3)
  1. ABILIFY [Suspect]
     Indication: SCHIZOPHRENIA
     Route: 048
     Dates: start: 20050201, end: 20050301
  2. MORPHINE [Concomitant]
  3. INSULIN [Concomitant]

REACTIONS (1)
  - CHROMATURIA [None]
